FAERS Safety Report 6121595-6 (Version None)
Quarter: 2009Q1

REPORT INFORMATION
  Report Type: 
  Country: None (occurrence: None)
  Receive Date: 20090317
  Receipt Date: 20090310
  Transmission Date: 20090719
  Serious: Yes (Death, Hospitalization)
  Sender: FDA-Public Use
  Company Number: US-KINGPHARMUSA00001-K200900261

PATIENT
  Age: 85 Year
  Sex: Female

DRUGS (6)
  1. ALTACE [Suspect]
     Dosage: 2.5 MG, QD
     Route: 048
  2. DI-ANTALVIC                        /00016701/ [Suspect]
     Dosage: 6 U, QD
     Route: 048
  3. TEGRETOL [Suspect]
     Dosage: 500 MG, QD
     Route: 048
  4. NICARDIPINE HCL [Suspect]
     Dosage: 100 MG, QD
     Route: 048
  5. CERVOXAN [Suspect]
     Dosage: 60 MG, QD
     Route: 048
  6. ASPEGIC 325 [Concomitant]
     Dosage: 250 MG, UNK
     Route: 048

REACTIONS (15)
  - FALL [None]
  - HEAD INJURY [None]
  - HYPERHIDROSIS [None]
  - MALAISE [None]
  - METABOLIC ACIDOSIS [None]
  - MUSCLE SPASMS [None]
  - MYOCARDIAL ISCHAEMIA [None]
  - PALLOR [None]
  - RENAL FAILURE ACUTE [None]
  - SEPTIC SHOCK [None]
  - SHOCK [None]
  - SKELETAL INJURY [None]
  - SPLENIC RUPTURE [None]
  - THIRST [None]
  - UNEVALUABLE EVENT [None]
